FAERS Safety Report 9197599 (Version 1)
Quarter: 2013Q1

REPORT INFORMATION
  Report Type: Spontaneous
  Country: ZA (occurrence: ZA)
  Receive Date: 20130328
  Receipt Date: 20130328
  Transmission Date: 20140127
  Serious: Yes (Other)
  Sender: FDA-Public Use
  Company Number: ZA-GLAXOSMITHKLINE-B0878607A

PATIENT
  Age: 17 Year
  Sex: Male

DRUGS (2)
  1. LAMICTIN [Suspect]
     Indication: DEPRESSION
     Route: 048
  2. CIPRALEX [Concomitant]
     Indication: DEPRESSION
     Route: 048

REACTIONS (2)
  - Suicidal ideation [Unknown]
  - Acne [Not Recovered/Not Resolved]
